FAERS Safety Report 19274977 (Version 2)
Quarter: 2021Q2

REPORT INFORMATION
  Report Type: Other
  Country: None (occurrence: US)
  Receive Date: 20210519
  Receipt Date: 20210604
  Transmission Date: 20210717
  Serious: No
  Sender: FDA-Public Use
  Company Number: US-SHEFFIELD PHARMACEUTICALS, LLC-2110706

PATIENT
  Age: 55 Year
  Sex: Female

DRUGS (1)
  1. SODIUM FLUORIDE 5000 PPM FRUIT [Suspect]
     Active Substance: SODIUM FLUORIDE
     Indication: DENTAL CARIES
     Route: 048
     Dates: start: 20210415, end: 20210415

REACTIONS (1)
  - Hypersensitivity [Recovered/Resolved]

NARRATIVE: CASE EVENT DATE: 20210415
